FAERS Safety Report 22651786 (Version 1)
Quarter: 2023Q2

REPORT INFORMATION
  Report Type: Spontaneous
  Country: US (occurrence: US)
  Receive Date: 20230628
  Receipt Date: 20230628
  Transmission Date: 20230722
  Serious: No
  Sender: FDA-Public Use
  Company Number: US-CTI BIOPHARMA-2023US03604

PATIENT

DRUGS (11)
  1. VONJO [Suspect]
     Active Substance: PACRITINIB
     Indication: Myelofibrosis
     Dosage: 200 MG
     Route: 048
     Dates: start: 20220901
  2. COLESTIPOL [Concomitant]
     Active Substance: COLESTIPOL
  3. COZAAR [Concomitant]
     Active Substance: LOSARTAN POTASSIUM
  4. LIDOCAINE [Concomitant]
     Active Substance: LIDOCAINE
  5. OMEPRAZOLE [Concomitant]
     Active Substance: OMEPRAZOLE
  6. PRED FORTE [Concomitant]
     Active Substance: PREDNISOLONE ACETATE
  7. PRILOCAINE [Concomitant]
     Active Substance: PRILOCAINE
  8. SYNTHROID [Concomitant]
     Active Substance: LEVOTHYROXINE SODIUM
  9. TIMOLOL [Concomitant]
     Active Substance: TIMOLOL
  10. TRAZODONE [Concomitant]
     Active Substance: TRAZODONE HYDROCHLORIDE
  11. VITAMIN D2 [Concomitant]
     Active Substance: ERGOCALCIFEROL

REACTIONS (2)
  - Drug ineffective [Unknown]
  - Platelet count decreased [Unknown]
